FAERS Safety Report 5423396-0 (Version None)
Quarter: 2007Q3

REPORT INFORMATION
  Report Type: 
  Country: None (occurrence: None)
  Receive Date: 20070823
  Receipt Date: 20070817
  Transmission Date: 20080115
  Serious: Yes (Death, Hospitalization)
  Sender: FDA-Public Use
  Company Number: SE-RB-3336-2006

PATIENT
  Age: 30 Year
  Sex: Male

DRUGS (2)
  1. SUBUTEX [Suspect]
     Route: 060
     Dates: start: 20060401
  2. SUBUTEX [Suspect]
     Route: 060
     Dates: start: 20060101, end: 20060401

REACTIONS (2)
  - COMPLETED SUICIDE [None]
  - DELUSIONAL DISORDER, PERSECUTORY TYPE [None]
